FAERS Safety Report 21672198 (Version 1)
Quarter: 2022Q4

REPORT INFORMATION
  Report Type: Spontaneous
  Country: US (occurrence: US)
  Receive Date: 20221202
  Receipt Date: 20221202
  Transmission Date: 20230113
  Serious: Yes (Hospitalization, Other)
  Sender: FDA-Public Use
  Company Number: US-CIPLA LTD.-2022US06897

PATIENT
  Age: 77 Year
  Sex: Male

DRUGS (4)
  1. CARBOPLATIN [Suspect]
     Active Substance: CARBOPLATIN
     Indication: Lung squamous cell carcinoma stage III
     Dosage: UNK, DOSE-REDUCED (75%)
     Route: 065
  2. CARBOPLATIN [Suspect]
     Active Substance: CARBOPLATIN
     Indication: Tumour invasion
  3. PACLITAXEL [Suspect]
     Active Substance: PACLITAXEL
     Indication: Lung squamous cell carcinoma stage III
     Dosage: UNK, DOSE-REDUCED (75%)
     Route: 065
  4. PACLITAXEL [Suspect]
     Active Substance: PACLITAXEL
     Indication: Tumour invasion

REACTIONS (7)
  - Streptococcal bacteraemia [Unknown]
  - Pneumonia streptococcal [Unknown]
  - Neutropenia [Unknown]
  - Oesophagitis [Unknown]
  - Cough [Unknown]
  - Radiation skin injury [Unknown]
  - Fatigue [Unknown]
